FAERS Safety Report 9850089 (Version 1)
Quarter: 2014Q1

REPORT INFORMATION
  Report Type: Spontaneous
  Country: US (occurrence: US)
  Receive Date: 20140128
  Receipt Date: 20140128
  Transmission Date: 20141002
  Serious: Yes (Other)
  Sender: FDA-Public Use
  Company Number: US-009507513-1401USA008351

PATIENT
  Sex: Female

DRUGS (2)
  1. FOSAMAX [Suspect]
     Dosage: UNK
     Route: 048
  2. FOSAMAX [Suspect]
     Dosage: UNK
     Route: 048
     Dates: start: 200208

REACTIONS (3)
  - Osteonecrosis of jaw [Unknown]
  - Oral infection [Unknown]
  - Tooth extraction [Unknown]
